FAERS Safety Report 7393469-4 (Version None)
Quarter: 2011Q2

REPORT INFORMATION
  Report Type: 
  Country: None (occurrence: None)
  Receive Date: 20110405
  Receipt Date: 20101014
  Transmission Date: 20111010
  Serious: Yes (Hospitalization, Other)
  Sender: FDA-Public Use
  Company Number: US-BAYER-200942911NA

PATIENT
  Sex: Female
  Weight: 77.098 kg

DRUGS (6)
  1. LUTRELEF [Concomitant]
  2. YAZ [Suspect]
     Indication: PREMENSTRUAL SYNDROME
     Route: 048
     Dates: start: 20080101, end: 20100615
  3. TRI-SPRINTEC [Concomitant]
     Dosage: UNK
     Dates: start: 20070101, end: 20080101
  4. IMITREX [Concomitant]
  5. YASMIN [Suspect]
     Indication: PREMENSTRUAL SYNDROME
     Route: 048
     Dates: start: 20080101, end: 20100615
  6. NSAID'S [Concomitant]

REACTIONS (2)
  - CHOLELITHIASIS [None]
  - CHOLECYSTECTOMY [None]
